FAERS Safety Report 6859379-3 (Version None)
Quarter: 2010Q3

REPORT INFORMATION
  Report Type: 
  Country: None (occurrence: None)
  Receive Date: 20100719
  Receipt Date: 20080603
  Transmission Date: 20110219
  Serious: No
  Sender: FDA-Public Use
  Company Number: US-PFIZER INC-2008016982

PATIENT
  Age: 44 Year
  Sex: Female
  Weight: 59.87 kg

DRUGS (2)
  1. CHANTIX [Suspect]
     Indication: SMOKING CESSATION THERAPY
     Dates: start: 20080123, end: 20080228
  2. ERY-TAB [Concomitant]

REACTIONS (13)
  - ABNORMAL DREAMS [None]
  - CHEST DISCOMFORT [None]
  - CONFUSIONAL STATE [None]
  - DECREASED ACTIVITY [None]
  - DEPRESSED MOOD [None]
  - DYSGEUSIA [None]
  - FATIGUE [None]
  - GINGIVAL BLEEDING [None]
  - HEADACHE [None]
  - INSOMNIA [None]
  - NAUSEA [None]
  - RESTLESSNESS [None]
  - WEIGHT INCREASED [None]
